FAERS Safety Report 7115761-0 (Version None)
Quarter: 2010Q4

REPORT INFORMATION
  Report Type: 
  Country: None (occurrence: None)
  Receive Date: 20101122
  Receipt Date: 20101110
  Transmission Date: 20110411
  Serious: Yes (Other)
  Sender: FDA-Public Use
  Company Number: AU-AMGEN-QUU436194

PATIENT

DRUGS (1)
  1. ARANESP [Suspect]
     Indication: PRODUCT USED FOR UNKNOWN INDICATION
     Dosage: 200 A?G, QWK

REACTIONS (3)
  - ANAEMIA [None]
  - OCCULT BLOOD POSITIVE [None]
  - PLATELET COUNT ABNORMAL [None]
